FAERS Safety Report 5947405-5 (Version None)
Quarter: 2008Q4

REPORT INFORMATION
  Report Type: 
  Country: None (occurrence: None)
  Receive Date: 20081110
  Receipt Date: 20081029
  Transmission Date: 20090506
  Serious: Yes (Other)
  Sender: FDA-Public Use
  Company Number: GB-PFIZER INC-2008092068

PATIENT
  Age: 16 Year
  Sex: Male

DRUGS (1)
  1. ZYVOX [Suspect]
     Route: 048
     Dates: start: 20081001, end: 20081028

REACTIONS (2)
  - BONE MARROW FAILURE [None]
  - BONE MARROW TRANSPLANT [None]
